FAERS Safety Report 13113466 (Version 2)
Quarter: 2017Q1

REPORT INFORMATION
  Report Type: Spontaneous
  Country: HU (occurrence: HU)
  Receive Date: 20170113
  Receipt Date: 20170206
  Transmission Date: 20170428
  Serious: Yes (Death)
  Sender: FDA-Public Use
  Company Number: HU-PFIZER INC-2016281560

PATIENT
  Age: 52 Year
  Sex: Female

DRUGS (7)
  1. XALKORI [Suspect]
     Active Substance: CRIZOTINIB
     Indication: LUNG ADENOCARCINOMA
     Dosage: 250 MG, 2X/DAY
     Dates: start: 20160521, end: 20160722
  2. XANAX XR [Concomitant]
     Active Substance: ALPRAZOLAM
     Dosage: 1 MG, 2X
  3. XALKORI [Suspect]
     Active Substance: CRIZOTINIB
     Dosage: 250 MG, 1X/DAY
  4. FUROSEMID [Concomitant]
     Active Substance: FUROSEMIDE
     Dosage: WEEKLY 2-3 TIMES
  5. REMERON [Concomitant]
     Active Substance: MIRTAZAPINE
     Dosage: 30 MG, IN THE EVENING
  6. BISOBLOCK PLUS [Concomitant]
     Dosage: 1 DF, (TABLET) AT NOON
  7. CLEXANE [Concomitant]
     Active Substance: ENOXAPARIN SODIUM
     Indication: PROPHYLAXIS
     Dosage: 0.4 UNK, 1X IN THE EVENING
     Route: 058

REACTIONS (5)
  - Generalised oedema [Recovered/Resolved]
  - Constipation [Recovered/Resolved]
  - Respiratory failure [Fatal]
  - Visual impairment [Recovered/Resolved]
  - Cachexia [Fatal]

NARRATIVE: CASE EVENT DATE: 20160722
